FAERS Safety Report 17375301 (Version 5)
Quarter: 2024Q4

REPORT INFORMATION
  Report Type: Spontaneous
  Country: IT (occurrence: IT)
  Receive Date: 20200205
  Receipt Date: 20241223
  Transmission Date: 20250114
  Serious: Yes (Life-Threatening, Hospitalization, Other)
  Sender: MYLAN
  Company Number: IT-ADIENNEP-2019AD000600

PATIENT
  Age: 59 Year
  Sex: Male

DRUGS (11)
  1. METHOTREXATE [Suspect]
     Active Substance: METHOTREXATE
     Indication: Prophylaxis against graft versus host disease
     Dosage: 30 MG DAY +1 THEN 20 MG DAYS +3 AND +6
     Route: 065
     Dates: start: 201803
  2. METHOTREXATE [Suspect]
     Active Substance: METHOTREXATE
     Dosage: 20 MILLIGRAM, QD 20 MG DAYS +3 AND +6)
     Route: 065
     Dates: start: 201803
  3. METHOTREXATE [Suspect]
     Active Substance: METHOTREXATE
     Dosage: 30 MILLIGRAM, QD, (30 MG DAY +1 THEN 20 MG DAYS +3 AND +6)
     Route: 065
     Dates: start: 201803
  4. FLUDARABINE [Suspect]
     Active Substance: FLUDARABINE PHOSPHATE
     Indication: Allogenic stem cell transplantation
     Dosage: 80 MILLIGRAM, QD (80 MG DAILY ON DAY-3)
     Route: 065
     Dates: start: 201803
  5. FLUDARABINE [Suspect]
     Active Substance: FLUDARABINE PHOSPHATE
     Indication: Antifungal prophylaxis
  6. BUSULFAN [Suspect]
     Active Substance: BUSULFAN
     Indication: Allogenic stem cell transplantation
     Dosage: 240 MILLIGRAM, QD (240 MG DAILY ON DAYS -5 AND -4)
     Route: 065
  7. LAPINE T-LYMPHOCYTE IMMUNE GLOBULIN [Suspect]
     Active Substance: LAPINE T-LYMPHOCYTE IMMUNE GLOBULIN
     Indication: Prophylaxis against graft versus host disease
     Dosage: 2.5 MG/KG DAYS -3, -2, -1
     Route: 042
  8. THIOTEPA [Suspect]
     Active Substance: THIOTEPA
     Indication: Allogenic stem cell transplantation
     Dosage: 390 MILLIGRAM, QD (390 MG ON DAY -6)
     Route: 065
  9. CYCLOSPORINE [Suspect]
     Active Substance: CYCLOSPORINE
     Indication: Prophylaxis against graft versus host disease
     Dosage: 3 MG/KG CONTINUOUS INFUSION FROM DAY -1
     Route: 042
     Dates: start: 201803, end: 201804
  10. MICAFUNGIN [Concomitant]
     Active Substance: MICAFUNGIN SODIUM
     Indication: Antifungal prophylaxis
     Dosage: UNK
     Route: 065
  11. MICAFUNGIN [Concomitant]
     Active Substance: MICAFUNGIN SODIUM
     Dosage: UNK
     Route: 065
     Dates: start: 201803

REACTIONS (15)
  - Vasogenic cerebral oedema [Recovered/Resolved]
  - Ophthalmic vein thrombosis [Recovered/Resolved]
  - Cavernous sinus thrombosis [Recovered/Resolved]
  - Trigeminal neuralgia [Recovered/Resolved]
  - Brain abscess [Recovered/Resolved]
  - Carotid artery thrombosis [Recovered/Resolved]
  - Sensory loss [Recovered/Resolved]
  - Sinusitis fungal [Recovered/Resolved]
  - VIth nerve paralysis [Recovered/Resolved]
  - Weight decreased [Recovered/Resolved]
  - Rhinocerebral mucormycosis [Recovering/Resolving]
  - Graft versus host disease in eye [Recovering/Resolving]
  - Graft versus host disease in liver [Recovering/Resolving]
  - Graft versus host disease in skin [Recovering/Resolving]
  - Graft versus host disease in gastrointestinal tract [Recovering/Resolving]

NARRATIVE: CASE EVENT DATE: 20180101
